FAERS Safety Report 7772309-5 (Version None)
Quarter: 2011Q3

REPORT INFORMATION
  Report Type: 
  Country: None (occurrence: None)
  Receive Date: 20110922
  Receipt Date: 20100318
  Transmission Date: 20111222
  Serious: Yes (Hospitalization)
  Sender: FDA-Public Use
  Company Number: US-ASTRAZENECA-2010SE22007

PATIENT
  Age: 16491 Day
  Sex: Female

DRUGS (9)
  1. METOCLOPRAM [Concomitant]
     Dates: start: 20060328
  2. SEROQUEL [Suspect]
     Indication: NERVOUSNESS
     Dosage: 100 MG TWO. THREE TIMES A DAY
     Route: 048
     Dates: start: 20060322
  3. SEROQUEL [Suspect]
     Dosage: 300 MG ONE TABLET BY MOUTH TWICE A DAY AS NEEDED
     Route: 048
     Dates: start: 20060325
  4. OXYCO/APAP [Concomitant]
     Dosage: 10-650 ONE TABLET BY MOUTH EVERY SIX HOURS AS NEEDED
     Route: 048
     Dates: start: 20050601
  5. INDERAL [Concomitant]
     Route: 048
     Dates: start: 20060322
  6. LASIX [Concomitant]
     Dosage: 40 MG TWO. TWICE A DAY AS NEEDED
     Route: 048
     Dates: start: 20060322
  7. PREDNISONE [Concomitant]
     Dosage: 10 MG TO 40 MG
     Route: 048
     Dates: start: 20060325
  8. PRANDIN [Concomitant]
     Route: 048
     Dates: start: 20060322
  9. REMERON [Concomitant]
     Route: 048
     Dates: start: 20060322

REACTIONS (1)
  - ASTHMA [None]
